FAERS Safety Report 25142349 (Version 1)
Quarter: 2025Q1

REPORT INFORMATION
  Report Type: Spontaneous
  Country: US (occurrence: US)
  Receive Date: 20250331
  Receipt Date: 20250331
  Transmission Date: 20250408
  Serious: No
  Sender: EVOLUS, INC.
  Company Number: US-Evolus, Inc.-2024EV000264

PATIENT
  Age: 76 Year
  Sex: Female

DRUGS (1)
  1. JEUVEAU [Suspect]
     Active Substance: PRABOTULINUMTOXINA-XVFS
     Indication: Off label use

REACTIONS (9)
  - Nasal turbinate hypertrophy [Not Recovered/Not Resolved]
  - Eustachian tube obstruction [Not Recovered/Not Resolved]
  - Periorbital swelling [Unknown]
  - Visual impairment [Unknown]
  - Dysphagia [Unknown]
  - Urticaria [Unknown]
  - Dysphonia [Unknown]
  - Eyelid ptosis [Unknown]
  - Off label use [Unknown]
